FAERS Safety Report 7260987-9 (Version None)
Quarter: 2011Q1

REPORT INFORMATION
  Report Type: 
  Country: None (occurrence: None)
  Receive Date: 20110130
  Receipt Date: 20101112
  Transmission Date: 20110831
  Serious: No
  Sender: FDA-Public Use
  Company Number: US-ABBOTT-10P-163-0685218-00

PATIENT
  Age: 56 Year
  Sex: Female

DRUGS (7)
  1. LEXAPRO [Concomitant]
     Indication: DEPRESSION
  2. MELOXICAM [Concomitant]
     Indication: ANTIINFLAMMATORY THERAPY
  3. HUMIRA [Suspect]
     Indication: RHEUMATOID ARTHRITIS
     Dates: start: 20091001
  4. PREMARIN [Concomitant]
     Indication: PRODUCT USED FOR UNKNOWN INDICATION
  5. LISINOPRIL [Concomitant]
     Indication: HYPERTENSION
  6. LEVOTHYROXINE SODIUM [Concomitant]
     Indication: PRODUCT USED FOR UNKNOWN INDICATION
  7. ATENOLOL [Concomitant]
     Indication: BLOOD PRESSURE

REACTIONS (4)
  - FATIGUE [None]
  - THROAT IRRITATION [None]
  - RHINORRHOEA [None]
  - CHILLS [None]
